FAERS Safety Report 20008118 (Version 4)
Quarter: 2022Q4

REPORT INFORMATION
  Report Type: Report from Study
  Country: FR (occurrence: FR)
  Receive Date: 20211029
  Receipt Date: 20221205
  Transmission Date: 20230112
  Serious: Yes (Hospitalization, Other)
  Sender: FDA-Public Use
  Company Number: FR-TAKEDA-2021TUS064829

PATIENT
  Age: 10 Year
  Sex: Male

DRUGS (21)
  1. TEDUGLUTIDE [Suspect]
     Active Substance: TEDUGLUTIDE
     Indication: Short-bowel syndrome
     Dosage: 1.6 MILLIGRAM, QD
     Route: 042
     Dates: start: 20200307, end: 20210511
  2. TEDUGLUTIDE [Suspect]
     Active Substance: TEDUGLUTIDE
     Indication: Short-bowel syndrome
     Dosage: 1.6 MILLIGRAM, QD
     Route: 042
     Dates: start: 20200307, end: 20210511
  3. TEDUGLUTIDE [Suspect]
     Active Substance: TEDUGLUTIDE
     Indication: Short-bowel syndrome
     Dosage: 1.6 MILLIGRAM, QD
     Route: 042
     Dates: start: 20200307, end: 20210511
  4. TEDUGLUTIDE [Suspect]
     Active Substance: TEDUGLUTIDE
     Indication: Short-bowel syndrome
     Dosage: 1.6 MILLIGRAM, QD
     Route: 042
     Dates: start: 20200307, end: 20210511
  5. TEDUGLUTIDE [Suspect]
     Active Substance: TEDUGLUTIDE
     Dosage: 1.7 MILLIGRAM, QD
     Route: 042
     Dates: start: 20210511, end: 20211108
  6. TEDUGLUTIDE [Suspect]
     Active Substance: TEDUGLUTIDE
     Dosage: 1.7 MILLIGRAM, QD
     Route: 042
     Dates: start: 20210511, end: 20211108
  7. TEDUGLUTIDE [Suspect]
     Active Substance: TEDUGLUTIDE
     Dosage: 1.7 MILLIGRAM, QD
     Route: 042
     Dates: start: 20210511, end: 20211108
  8. TEDUGLUTIDE [Suspect]
     Active Substance: TEDUGLUTIDE
     Dosage: 1.7 MILLIGRAM, QD
     Route: 042
     Dates: start: 20210511, end: 20211108
  9. TEDUGLUTIDE [Suspect]
     Active Substance: TEDUGLUTIDE
     Dosage: 1.800 MILLIGRAM, 4/WEEK
     Route: 042
     Dates: start: 20211109
  10. TEDUGLUTIDE [Suspect]
     Active Substance: TEDUGLUTIDE
     Dosage: 1.800 MILLIGRAM, 4/WEEK
     Route: 042
     Dates: start: 20211109
  11. TEDUGLUTIDE [Suspect]
     Active Substance: TEDUGLUTIDE
     Dosage: 1.800 MILLIGRAM, 4/WEEK
     Route: 042
     Dates: start: 20211109
  12. TEDUGLUTIDE [Suspect]
     Active Substance: TEDUGLUTIDE
     Dosage: 1.800 MILLIGRAM, 4/WEEK
     Route: 042
     Dates: start: 20211109
  13. SODIUM CHLORIDE [Concomitant]
     Active Substance: SODIUM CHLORIDE
     Indication: Hyponatraemia
     Dosage: 680 MILLILITER, ONE DOSE
     Route: 042
     Dates: start: 20210823, end: 20210823
  14. Dolipran [Concomitant]
     Indication: Pyrexia
     Dosage: 500 MILLIGRAM, ONE DOSE
     Route: 048
     Dates: start: 20210823, end: 20210823
  15. VANCOMYCIN [Concomitant]
     Active Substance: VANCOMYCIN
     Indication: Dyspepsia
     Dosage: 250 MILLIGRAM, QD
     Route: 048
     Dates: start: 20201112, end: 20201121
  16. VANCOMYCIN [Concomitant]
     Active Substance: VANCOMYCIN
     Indication: Antibiotic therapy
     Dosage: UNK, TID
     Route: 048
     Dates: start: 20200829, end: 20200907
  17. VANCOMYCIN [Concomitant]
     Active Substance: VANCOMYCIN
     Dosage: 125 MILLIGRAM, QOD
     Route: 048
     Dates: start: 20220307, end: 20220313
  18. VANCOMYCIN [Concomitant]
     Active Substance: VANCOMYCIN
     Dosage: 125 MILLIGRAM, QD
     Route: 048
     Dates: start: 20220228, end: 20220306
  19. VANCOMYCIN [Concomitant]
     Active Substance: VANCOMYCIN
     Dosage: 125 MILLIGRAM, BID
     Route: 048
     Dates: start: 20220220, end: 20220227
  20. VANCOMYCIN [Concomitant]
     Active Substance: VANCOMYCIN
     Dosage: 125 MILLIGRAM, QID
     Route: 048
     Dates: start: 20220211, end: 20220220
  21. AMOXICILLIN [Concomitant]
     Active Substance: AMOXICILLIN
     Indication: Pneumonia
     Dosage: 1 GRAM, TID
     Route: 042
     Dates: start: 20210823, end: 20210824

REACTIONS (2)
  - Pneumonia [Recovered/Resolved]
  - Hyponatraemia [Recovered/Resolved]

NARRATIVE: CASE EVENT DATE: 20210819
